FAERS Safety Report 23353019 (Version 1)
Quarter: 2023Q4

REPORT INFORMATION
  Report Type: Spontaneous
  Country: FR (occurrence: FR)
  Receive Date: 20231230
  Receipt Date: 20231230
  Transmission Date: 20240109
  Serious: Yes (Hospitalization)
  Sender: FDA-Public Use
  Company Number: None

PATIENT
  Age: 65 Year
  Sex: Male
  Weight: 75 kg

DRUGS (14)
  1. DAPTOMYCIN [Suspect]
     Active Substance: DAPTOMYCIN
     Indication: Infective aneurysm
     Dosage: 500 MG
     Dates: start: 20230626, end: 20231117
  2. AMIODARONE [Suspect]
     Active Substance: AMIODARONE
     Indication: Product used for unknown indication
     Dates: end: 202308
  3. REPAGLINIDE [Concomitant]
     Active Substance: REPAGLINIDE
  4. FUROSEMIDE [Concomitant]
     Active Substance: FUROSEMIDE
  5. APIXABAN [Concomitant]
     Active Substance: APIXABAN
  6. LEVOTHYROXINE SODIUM [Concomitant]
     Active Substance: LEVOTHYROXINE SODIUM
  7. DAPAGLIFLOZIN [Concomitant]
     Active Substance: DAPAGLIFLOZIN
     Dosage: 10 MG, FILM-COATED TABLET
  8. ZOPICLONE [Concomitant]
     Active Substance: ZOPICLONE
  9. PIPERACILLIN AND TAZOBACTAM [Concomitant]
     Active Substance: PIPERACILLIN SODIUM\TAZOBACTAM SODIUM
     Dosage: 4 G/500 MG, POWDER FOR SOLUTION FOR INFUSION
  10. BISOPROLOL [Concomitant]
     Active Substance: BISOPROLOL\BISOPROLOL FUMARATE
  11. METFORMIN [Concomitant]
     Active Substance: METFORMIN HYDROCHLORIDE
  12. LANSOPRAZOLE [Concomitant]
     Active Substance: LANSOPRAZOLE
  13. SITAGLIPTIN [Concomitant]
     Active Substance: SITAGLIPTIN
  14. POTASSIUM [Concomitant]
     Active Substance: POTASSIUM

REACTIONS (1)
  - Interstitial lung disease [Not Recovered/Not Resolved]

NARRATIVE: CASE EVENT DATE: 20230801
